FAERS Safety Report 15727577 (Version 1)
Quarter: 2018Q4

REPORT INFORMATION
  Report Type: Spontaneous
  Country: US (occurrence: US)
  Receive Date: 20181217
  Receipt Date: 20181217
  Transmission Date: 20190205
  Serious: No
  Sender: FDA-Public Use
  Company Number: US-NOVEN PHARMACEUTICALS, INC.-US2017001274

PATIENT

DRUGS (3)
  1. PROMETRIUM [Concomitant]
     Active Substance: PROGESTERONE
     Dosage: UNK, FOR FIRST 10 DAYS IN A MONTH
     Route: 065
     Dates: start: 2017
  2. MINIVELLE [Suspect]
     Active Substance: ESTRADIOL
     Indication: OESTROGEN REPLACEMENT THERAPY
     Dosage: 0.05 MG, 2/WK
     Route: 062
     Dates: start: 2017, end: 2017
  3. MINIVELLE [Suspect]
     Active Substance: ESTRADIOL
     Dosage: 0.05 MG, 2/WK
     Route: 062
     Dates: start: 2017

REACTIONS (2)
  - No adverse event [Unknown]
  - Product dispensing error [Not Recovered/Not Resolved]

NARRATIVE: CASE EVENT DATE: 2017
